FAERS Safety Report 9550905 (Version 3)
Quarter: 2014Q2

REPORT INFORMATION
  Report Type: Spontaneous
  Country: US (occurrence: US)
  Receive Date: 20130924
  Receipt Date: 20140402
  Transmission Date: 20141212
  Serious: Yes (Hospitalization)
  Sender: FDA-Public Use
  Company Number: US-SANOFI-AVENTIS-2013SA048561

PATIENT
  Age: 63 Year
  Sex: Female

DRUGS (3)
  1. AUBAGIO [Suspect]
     Indication: MULTIPLE SCLEROSIS
     Dosage: 5 OR 6 MAY 2013
     Route: 048
     Dates: start: 20130505, end: 20130507
  2. ANTIHYPERTENSIVES [Concomitant]
  3. QUESTRAN [Concomitant]
     Route: 065
     Dates: start: 20130513, end: 20130721

REACTIONS (4)
  - Hypertension [Not Recovered/Not Resolved]
  - Ill-defined disorder [Unknown]
  - Blood pressure increased [Not Recovered/Not Resolved]
  - Palpitations [Unknown]
